FAERS Safety Report 7971132-6 (Version None)
Quarter: 2011Q4

REPORT INFORMATION
  Report Type: 
  Country: None (occurrence: None)
  Receive Date: 20111212
  Receipt Date: 20111205
  Transmission Date: 20120403
  Serious: Yes (Other)
  Sender: FDA-Public Use
  Company Number: GB-B.I. PHARMACEUTICALS,INC./RIDGEFIELD-2011-UK-01332UK

PATIENT

DRUGS (1)
  1. PRADAXA [Suspect]
     Indication: HIP ARTHROPLASTY

REACTIONS (1)
  - DEEP VEIN THROMBOSIS [None]
